FAERS Safety Report 8419002-3 (Version None)
Quarter: 2012Q2

REPORT INFORMATION
  Report Type: 
  Country: None (occurrence: None)
  Receive Date: 20120607
  Receipt Date: 20120601
  Transmission Date: 20120825
  Serious: Yes (Death, Other)
  Sender: FDA-Public Use
  Company Number: PHHY2011US48226

PATIENT
  Sex: Female

DRUGS (2)
  1. GLEEVEC [Suspect]
     Indication: CHRONIC MYELOID LEUKAEMIA
     Dosage: 200 MG, BID
     Route: 048
     Dates: start: 20100517
  2. GLEEVEC [Suspect]
     Dosage: 200 MG, BID
     Route: 048

REACTIONS (6)
  - DEATH [None]
  - LEUKAEMIA RECURRENT [None]
  - DIARRHOEA [None]
  - BLOOD POTASSIUM INCREASED [None]
  - OEDEMA PERIPHERAL [None]
  - LOCALISED OEDEMA [None]
